FAERS Safety Report 7404338-5 (Version None)
Quarter: 2011Q2

REPORT INFORMATION
  Report Type: 
  Country: None (occurrence: None)
  Receive Date: 20110408
  Receipt Date: 20110331
  Transmission Date: 20111010
  Serious: Yes (Death)
  Sender: FDA-Public Use
  Company Number: US-AMGEN-USASP2011017412

PATIENT
  Age: 44 Year
  Sex: Female

DRUGS (2)
  1. AMBIEN [Concomitant]
  2. ENBREL [Suspect]
     Indication: PSORIASIS
     Dosage: UNK
     Dates: start: 20081212, end: 20101001

REACTIONS (1)
  - ACCIDENTAL OVERDOSE [None]
